FAERS Safety Report 14592882 (Version 1)
Quarter: 2018Q1

REPORT INFORMATION
  Report Type: Other
  Country: CL (occurrence: CL)
  Receive Date: 20180302
  Receipt Date: 20180302
  Transmission Date: 20180509
  Serious: Yes (Life-Threatening)
  Sender: FDA-Public Use
  Company Number: CL-NOSTRUM LABORATORIES, INC.-2042867

PATIENT
  Age: 56 Year
  Sex: Female

DRUGS (1)
  1. METFORMIN HYDROCHLORIDE EXTENDED-RELEASE [Suspect]
     Active Substance: METFORMIN HYDROCHLORIDE
     Indication: TYPE 2 DIABETES MELLITUS
     Route: 048

REACTIONS (4)
  - Acute kidney injury [Recovered/Resolved]
  - Lactic acidosis [None]
  - Gastroenteritis Escherichia coli [Recovered/Resolved]
  - Hyperkalaemia [Recovered/Resolved]
